FAERS Safety Report 5376603-7 (Version None)
Quarter: 2007Q2

REPORT INFORMATION
  Report Type: 
  Country: None (occurrence: None)
  Receive Date: 20070628
  Receipt Date: 20070613
  Transmission Date: 20071010
  Serious: Yes (Death)
  Sender: FDA-Public Use
  Company Number: 2007JP002760

PATIENT
  Sex: Male

DRUGS (1)
  1. FUNGUARD(MICAFUNGIN) INJECTION [Suspect]
     Dosage: 150 MG, /D, IV DRIP
     Route: 041
     Dates: start: 20070609, end: 20070612

REACTIONS (1)
  - LIVER DISORDER [None]
